FAERS Safety Report 4537274-2 (Version None)
Quarter: 2004Q4

REPORT INFORMATION
  Report Type: 
  Country: None (occurrence: None)
  Receive Date: 20041223
  Receipt Date: 20041215
  Transmission Date: 20050328
  Serious: Yes (Other)
  Sender: FDA-Public Use
  Company Number: PHEH2004US13370

PATIENT
  Age: 76 Year
  Sex: Female

DRUGS (8)
  1. ZELNORM [Suspect]
     Indication: CONSTIPATION
     Dosage: 6 MG, BID
     Dates: start: 20041130, end: 20041214
  2. LISINOPRIL [Concomitant]
  3. DEMADEX [Concomitant]
  4. ACIPHEX [Concomitant]
  5. SLOW-K [Concomitant]
  6. ZIAC [Concomitant]
  7. PREMARIN [Concomitant]
  8. LIMBITROL [Concomitant]

REACTIONS (4)
  - BLOOD PRESSURE INCREASED [None]
  - CONDITION AGGRAVATED [None]
  - HYPERSENSITIVITY [None]
  - THROAT IRRITATION [None]
